FAERS Safety Report 7526167-4 (Version None)
Quarter: 2011Q2

REPORT INFORMATION
  Report Type: 
  Country: None (occurrence: None)
  Receive Date: 20110527
  Receipt Date: 20110516
  Transmission Date: 20111010
  Serious: Yes (Hospitalization)
  Sender: FDA-Public Use
  Company Number: UTC-007193

PATIENT
  Age: 74 Year
  Sex: Female

DRUGS (1)
  1. TYVASO [Suspect]
     Dosage: INHALATION
     Route: 055

REACTIONS (3)
  - ASTHENIA [None]
  - HAEMORRHAGE [None]
  - DRUG INEFFECTIVE [None]
